FAERS Safety Report 14746741 (Version 1)
Quarter: 2018Q2

REPORT INFORMATION
  Report Type: Spontaneous
  Country: HK (occurrence: HK)
  Receive Date: 20180411
  Receipt Date: 20180411
  Transmission Date: 20180711
  Serious: Yes (Other)
  Sender: FDA-Public Use
  Company Number: HK-ACELLA PHARMACEUTICALS, LLC-2045558

PATIENT
  Age: 46 Year
  Sex: Male

DRUGS (18)
  1. NEFOPAM [Suspect]
     Active Substance: NEFOPAM
  2. DIOXOPROMETHAZINE [Suspect]
     Active Substance: DIOXOPROMETHAZINE
  3. INDOMETHACIN. [Suspect]
     Active Substance: INDOMETHACIN
  4. PHENYLBUTAZONE [Suspect]
     Active Substance: PHENYLBUTAZONE
  5. CHLORZOXAZONE. [Suspect]
     Active Substance: CHLORZOXAZONE
  6. DICLOFENAC SODIUM. [Suspect]
     Active Substance: DICLOFENAC SODIUM
  7. PARACETAMOL [Suspect]
     Active Substance: ACETAMINOPHEN
  8. THEOPHYLLINE ANHYDROUS. [Suspect]
     Active Substance: THEOPHYLLINE ANHYDROUS
  9. TRIMETHOPRIM. [Suspect]
     Active Substance: TRIMETHOPRIM
  10. IBUPROFEN. [Suspect]
     Active Substance: IBUPROFEN
  11. NAPROXEN. [Suspect]
     Active Substance: NAPROXEN
  12. PREDNISONE. [Suspect]
     Active Substance: PREDNISONE
  13. PIROXICAM. [Suspect]
     Active Substance: PIROXICAM
  14. METOCLOPRAMIDE. [Suspect]
     Active Substance: METOCLOPRAMIDE
  15. HYDROCHLOROTHIAZIDE. [Suspect]
     Active Substance: HYDROCHLOROTHIAZIDE
  16. JIA RONG ZHUANG GU TONG BI JIAO NANG (UNDECLARED INGREDIENT) [Suspect]
     Active Substance: NAPROXEN SODIUM
  17. HYDROCODONE BITARTRATE AND CHLORPHENIRAMINE MALEATE [Suspect]
     Active Substance: CHLORPHENIRAMINE MALEATE\HYDROCODONE BITARTRATE
  18. CIMETIDINE [Suspect]
     Active Substance: CIMETIDINE

REACTIONS (3)
  - Renal impairment [Unknown]
  - Renal failure [Unknown]
  - Peptic ulcer [Unknown]
